FAERS Safety Report 18241243 (Version 1)
Quarter: 2020Q3

REPORT INFORMATION
  Report Type: Spontaneous
  Country: US (occurrence: US)
  Receive Date: 20200904
  Receipt Date: 20200904
  Transmission Date: 20201103
  Serious: Yes (Hospitalization)
  Sender: FDA-Public Use
  Company Number: None

PATIENT
  Age: 66 Year
  Sex: Male

DRUGS (1)
  1. REVLIMID [Suspect]
     Active Substance: LENALIDOMIDE
     Indication: PLASMA CELL MYELOMA
     Route: 048
     Dates: start: 20181019

REACTIONS (4)
  - Platelet count decreased [None]
  - Ulcer haemorrhage [None]
  - Herpes zoster [None]
  - Petechiae [None]

NARRATIVE: CASE EVENT DATE: 20200724
